FAERS Safety Report 5871746-3 (Version None)
Quarter: 2008Q3

REPORT INFORMATION
  Report Type: 
  Country: None (occurrence: None)
  Receive Date: 20080904
  Receipt Date: 20080904
  Transmission Date: 20090109
  Serious: Yes (Other)
  Sender: FDA-Public Use
  Company Number: None

PATIENT
  Age: 20 Year
  Sex: Female
  Weight: 61.2356 kg

DRUGS (1)
  1. KENALOG [Suspect]
     Dosage: IV
     Route: 042
     Dates: start: 20020810, end: 20040816

REACTIONS (4)
  - ARTHRALGIA [None]
  - BACK PAIN [None]
  - CUTANEOUS CONTOUR DEFORMITY [None]
  - NECK PAIN [None]
